FAERS Safety Report 4349981-5 (Version None)
Quarter: 2004Q2

REPORT INFORMATION
  Report Type: 
  Country: None (occurrence: None)
  Receive Date: 20040428
  Receipt Date: 20040428
  Transmission Date: 20050107
  Serious: Yes (Hospitalization)
  Sender: FDA-Public Use
  Company Number: None

PATIENT
  Sex: Male

DRUGS (14)
  1. PHENYTOIN [Suspect]
     Indication: CONVULSION
     Dosage: 300 MG HS ORAL
     Route: 048
  2. IPRATROPIUM BROMIDE [Concomitant]
  3. ALBUTEROL [Concomitant]
  4. LEVOTHYROXINE [Concomitant]
  5. OLANZAPINE [Concomitant]
  6. GABAPENTIN [Concomitant]
  7. ASPIRIN [Concomitant]
  8. TERAZOSIN HCL [Concomitant]
  9. RANITIDINE [Concomitant]
  10. MULTI-VITAMIN [Concomitant]
  11. LISINOPRIL [Concomitant]
  12. FOLIC ACID [Concomitant]
  13. FELODIPINE [Concomitant]
  14. DOCUSATE [Concomitant]

REACTIONS (4)
  - DIZZINESS [None]
  - DRUG LEVEL INCREASED [None]
  - FALL [None]
  - MEDICATION ERROR [None]
